FAERS Safety Report 9499072 (Version 1)
Quarter: 2013Q3

REPORT INFORMATION
  Report Type: Spontaneous
  Country: US (occurrence: US)
  Receive Date: 20130904
  Receipt Date: 20130904
  Transmission Date: 20140515
  Serious: No
  Sender: FDA-Public Use
  Company Number: US-TEVA-428317USA

PATIENT
  Age: 68 Year
  Sex: Male

DRUGS (12)
  1. AZILECT [Suspect]
     Dosage: 1 MILLIGRAM DAILY;
     Route: 048
  2. FOLIC ACID [Concomitant]
  3. FISH OIL [Concomitant]
  4. COQ10 [Concomitant]
  5. PRILOSEC [Concomitant]
  6. REQUIP [Concomitant]
  7. CIALIS [Concomitant]
  8. PRAVACHOL [Concomitant]
  9. AGGRENOX [Concomitant]
  10. ATENOLOL [Concomitant]
  11. ALLOPURINOL [Concomitant]
  12. AMLODIPINE [Concomitant]

REACTIONS (1)
  - Lip swelling [Unknown]
